FAERS Safety Report 17142807 (Version 1)
Quarter: 2019Q4

REPORT INFORMATION
  Report Type: Report from Study
  Country: US (occurrence: US)
  Receive Date: 20191211
  Receipt Date: 20191211
  Transmission Date: 20200122
  Serious: Yes (Hospitalization, Other)
  Sender: FDA-Public Use
  Company Number: US-GILEAD-2019-0442049

PATIENT
  Age: 67 Year
  Sex: Male

DRUGS (2)
  1. AZTREONAM LYSINE [Suspect]
     Active Substance: AZTREONAM LYSINE
     Indication: PSEUDOMONAS INFECTION
  2. AZTREONAM LYSINE [Suspect]
     Active Substance: AZTREONAM LYSINE
     Indication: CYSTIC FIBROSIS
     Dosage: UNK, TID ALTERNATING EVERY 14 DAYS
     Dates: start: 20171215

REACTIONS (3)
  - Off label use [Not Recovered/Not Resolved]
  - Sepsis [Recovering/Resolving]
  - Cystic fibrosis [Recovering/Resolving]
